FAERS Safety Report 6918464-8 (Version None)
Quarter: 2010Q3

REPORT INFORMATION
  Report Type: 
  Country: None (occurrence: None)
  Receive Date: 20100722
  Receipt Date: 20090629
  Transmission Date: 20110219
  Serious: No
  Sender: FDA-Public Use
  Company Number: 2009-00370

PATIENT
  Age: 67 Year
  Sex: Female
  Weight: 49.8957 kg

DRUGS (4)
  1. ZICAM COLD REMEDY GEL SWABS [Suspect]
     Dosage: SPORADIC, 5-8 YEARS AGO
  2. ACTONEL [Concomitant]
  3. ASPIRIN [Concomitant]
  4. MULTI-VITAMIN [Concomitant]

REACTIONS (2)
  - AGEUSIA [None]
  - ANOSMIA [None]
